FAERS Safety Report 6589849-7 (Version None)
Quarter: 2010Q1

REPORT INFORMATION
  Report Type: 
  Country: None (occurrence: None)
  Receive Date: 20100219
  Receipt Date: 20100211
  Transmission Date: 20100710
  Serious: Yes (Other)
  Sender: FDA-Public Use
  Company Number: US-JNJFOC-20100206352

PATIENT
  Sex: Female
  Weight: 104.33 kg

DRUGS (5)
  1. DURAGESIC-100 [Suspect]
     Indication: SYSTEMIC LUPUS ERYTHEMATOSUS
     Route: 062
  2. DURAGESIC-100 [Suspect]
     Route: 062
  3. DURAGESIC-100 [Suspect]
     Route: 062
  4. DURAGESIC-100 [Suspect]
     Route: 062
  5. XANAX [Concomitant]
     Indication: NERVOUS SYSTEM DISORDER
     Route: 048

REACTIONS (5)
  - APPLICATION SITE EROSION [None]
  - BACK DISORDER [None]
  - DRUG INEFFECTIVE [None]
  - SPINAL CORD DISORDER [None]
  - SYSTEMIC LUPUS ERYTHEMATOSUS [None]
